FAERS Safety Report 9204299 (Version 2)
Quarter: 2013Q2

REPORT INFORMATION
  Report Type: Spontaneous
  Country: FR (occurrence: FR)
  Receive Date: 20130402
  Receipt Date: 20130422
  Transmission Date: 20140414
  Serious: Yes (Hospitalization)
  Sender: FDA-Public Use
  Company Number: FR-ROCHE-1208475

PATIENT
  Age: 61 Year
  Sex: Female
  Weight: 79 kg

DRUGS (7)
  1. XELODA [Suspect]
     Indication: BREAST CANCER
     Route: 048
     Dates: start: 20130204, end: 20130216
  2. XELODA [Suspect]
     Indication: METASTASES TO LYMPH NODES
  3. HERCEPTIN [Concomitant]
     Indication: BREAST CANCER
     Route: 042
     Dates: start: 201206
  4. HERCEPTIN [Concomitant]
     Indication: ADJUVANT THERAPY
  5. FLUOROURACIL [Concomitant]
     Indication: BREAST CANCER
  6. EPIRUBICIN [Concomitant]
     Indication: BREAST CANCER
  7. CYCLOPHOSPHAMIDE [Concomitant]
     Indication: BREAST CANCER

REACTIONS (3)
  - Crohn^s disease [Recovered/Resolved]
  - Palmar-plantar erythrodysaesthesia syndrome [Recovered/Resolved]
  - Polyneuropathy [Recovered/Resolved with Sequelae]
